FAERS Safety Report 9490551 (Version 2)
Quarter: 2013Q4

REPORT INFORMATION
  Report Type: Spontaneous
  Country: US (occurrence: US)
  Receive Date: 20130830
  Receipt Date: 20131114
  Transmission Date: 20140711
  Serious: Yes (Other)
  Sender: FDA-Public Use
  Company Number: US-ELI_LILLY_AND_COMPANY-US201308007329

PATIENT
  Sex: Male

DRUGS (10)
  1. HUMULIN NPH [Suspect]
     Indication: DIABETES MELLITUS
     Route: 065
  2. INSULIN HUMAN [Suspect]
     Indication: DIABETES MELLITUS
     Route: 065
  3. BACLOFEN [Concomitant]
  4. LISINOPRIL [Concomitant]
  5. SEROQUEL [Concomitant]
  6. CRESTOR [Concomitant]
  7. LYRICA [Concomitant]
  8. AMLODIPINE [Concomitant]
  9. PLAVIX [Concomitant]
  10. OMEPRAZOL                          /00661201/ [Concomitant]

REACTIONS (1)
  - Cerebrovascular accident [Unknown]
